FAERS Safety Report 7243431-7 (Version None)
Quarter: 2011Q1

REPORT INFORMATION
  Report Type: 
  Country: None (occurrence: None)
  Receive Date: 20110119
  Receipt Date: 20110119
  Transmission Date: 20110831
  Serious: No
  Sender: FDA-Public Use
  Company Number: None

PATIENT
  Age: 37 Year
  Sex: Female
  Weight: 144.2 kg

DRUGS (1)
  1. PALIPERIDONE [Suspect]
     Indication: SCHIZOPHRENIA, PARANOID TYPE
     Dosage: 156 MG OTHER IM
     Route: 030
     Dates: start: 20101117

REACTIONS (6)
  - INJECTION SITE PAIN [None]
  - INJECTION SITE PRURITUS [None]
  - NODULE [None]
  - INJECTION SITE WARMTH [None]
  - ABSCESS [None]
  - INJECTION SITE ERYTHEMA [None]
